FAERS Safety Report 6294027 (Version 3)
Quarter: 2012Q4

REPORT INFORMATION
  Report Type: 
  Country: CA (occurrence: CA)
  Receive Date: 20070423
  Receipt Date: 20121111
  Transmission Date: 20130627
  Serious: Yes (Death, Hospitalization, Disabling, Other)
  Sender: FDA-Public Use
  Company Number: PHMT2006CA01528

PATIENT
  Sex: Male

DRUGS (6)
  1. SANDOSTATIN LAR [Suspect]
     Indication: CARCINOID SYNDROME
     Dosage: UNK UKN, UNK
     Dates: start: 20030401
  2. SANDOSTATIN LAR [Suspect]
     Dosage: 60 mg every 3 weeks
     Route: 030
     Dates: start: 200701, end: 20071017
  3. ANTIHYPERTENSIVE DRUGS [Concomitant]
     Dosage: UNK UKN, UNK
  4. ELECTROLYTES NOS [Concomitant]
     Dosage: UNK UKN, UNK
  5. COSOPT [Concomitant]
     Dosage: UNK UKN, UNK
  6. TOBRADEX [Concomitant]
     Dosage: UNK UKN, UNK

REACTIONS (35)
  - Hepatic neoplasm [Fatal]
  - Disease progression [Fatal]
  - Malaise [Unknown]
  - Weight decreased [Unknown]
  - Flushing [Recovering/Resolving]
  - Diarrhoea [Not Recovered/Not Resolved]
  - Fatigue [Unknown]
  - Loss of consciousness [Recovered/Resolved]
  - Bile duct obstruction [Recovered/Resolved]
  - Metastases to stomach [Unknown]
  - Cerebrovascular accident [Unknown]
  - General physical health deterioration [Unknown]
  - Abdominal discomfort [Recovering/Resolving]
  - Arthritis [Unknown]
  - Hormone level abnormal [Unknown]
  - Nasopharyngitis [Unknown]
  - Blood pressure increased [Unknown]
  - Feeling abnormal [Unknown]
  - Pain [Unknown]
  - Increased appetite [Unknown]
  - Restlessness [Unknown]
  - Blood pressure decreased [Unknown]
  - Injection site reaction [Unknown]
  - Pyrexia [Unknown]
  - Injection site haemorrhage [Unknown]
  - Cough [Unknown]
  - Abdominal distension [Unknown]
  - Abdominal pain upper [Unknown]
  - Nausea [Unknown]
  - Drug effect decreased [Unknown]
  - Retching [Unknown]
  - Asthenia [Unknown]
  - Heart rate decreased [Unknown]
  - Vomiting [Unknown]
  - Flatulence [Unknown]
